FAERS Safety Report 23501088 (Version 1)
Quarter: 2024Q1

REPORT INFORMATION
  Report Type: Spontaneous
  Country: CA (occurrence: CA)
  Receive Date: 20240208
  Receipt Date: 20240208
  Transmission Date: 20240409
  Serious: Yes (Hospitalization, Other)
  Sender: FDA-Public Use
  Company Number: CA-AstraZeneca-2021A145644

PATIENT
  Age: 84 Year
  Sex: Female

DRUGS (22)
  1. ALVESCO [Suspect]
     Active Substance: CICLESONIDE
     Route: 055
  2. SYMBICORT [Suspect]
     Active Substance: BUDESONIDE\FORMOTEROL FUMARATE DIHYDRATE
     Route: 055
  3. PULMICORT TURBUHALER [Suspect]
     Active Substance: BUDESONIDE
     Route: 055
  4. BREO ELLIPTA [Suspect]
     Active Substance: FLUTICASONE FUROATE\VILANTEROL TRIFENATATE
     Indication: Asthma
  5. ATROVENT [Suspect]
     Active Substance: IPRATROPIUM BROMIDE
  6. NUCALA [Suspect]
     Active Substance: MEPOLIZUMAB
     Indication: Asthma
  7. PREDNISONE [Suspect]
     Active Substance: PREDNISONE
  8. ALBUTEROL [Suspect]
     Active Substance: ALBUTEROL
  9. ALBUTEROL SULFATE [Suspect]
     Active Substance: ALBUTEROL SULFATE
  10. UMECLIDINIUM BROMIDE [Suspect]
     Active Substance: UMECLIDINIUM BROMIDE
     Indication: Asthma
  11. VALSARTAN [Concomitant]
     Active Substance: VALSARTAN
  12. TEMAZEPAM [Concomitant]
     Active Substance: TEMAZEPAM
  13. HERBALS\PLANTAGO OVATA LEAF [Concomitant]
     Active Substance: HERBALS\PLANTAGO OVATA LEAF
  14. NYSTATIN [Concomitant]
     Active Substance: NYSTATIN
  15. METOPROLOL [Concomitant]
     Active Substance: METOPROLOL
  16. POLYETHYLENE GLYCOLS [Concomitant]
     Active Substance: POLYETHYLENE GLYCOLS
  17. APIXABAN [Concomitant]
     Active Substance: APIXABAN
  18. CALCIUM [Concomitant]
     Active Substance: CALCIUM
  19. ETIDRONATE DISODIUM [Concomitant]
     Active Substance: ETIDRONATE DISODIUM
  20. FUROSEMIDE [Concomitant]
     Active Substance: FUROSEMIDE
  21. ALBUTEROL\IPRATROPIUM BROMIDE [Concomitant]
     Active Substance: ALBUTEROL\IPRATROPIUM BROMIDE
  22. ZINC OXIDE [Concomitant]
     Active Substance: ZINC OXIDE

REACTIONS (19)
  - Arthritis [Unknown]
  - Atrial fibrillation [Unknown]
  - Blood test abnormal [Unknown]
  - Bundle branch block left [Unknown]
  - Cardiac failure congestive [Unknown]
  - Dyspnoea exertional [Unknown]
  - Hiatus hernia [Unknown]
  - Insomnia [Unknown]
  - Joint swelling [Unknown]
  - Kyphosis [Unknown]
  - Oedema peripheral [Unknown]
  - Osteoarthritis [Unknown]
  - Osteoporosis [Unknown]
  - Pain in extremity [Unknown]
  - Pneumonia [Unknown]
  - Asthma [Unknown]
  - Dyspnoea [Unknown]
  - Cough [Unknown]
  - Obstructive airways disorder [Unknown]
